FAERS Safety Report 23053915 (Version 2)
Quarter: 2023Q4

REPORT INFORMATION
  Report Type: Spontaneous
  Country: DE (occurrence: DE)
  Receive Date: 20231011
  Receipt Date: 20231121
  Transmission Date: 20240110
  Serious: Yes (Other)
  Sender: FDA-Public Use
  Company Number: DE-ASTELLAS-2023US027523

PATIENT
  Sex: Male
  Weight: 111 kg

DRUGS (3)
  1. PADCEV [Suspect]
     Active Substance: ENFORTUMAB VEDOTIN-EJFV
     Indication: Bladder transitional cell carcinoma
     Dosage: 1.25 MG/KG, ONCE WEEKLY (C1D1, }125 MG, FOR WEIGHT 111 KG, MAXIMUM DOSE LIMIT NOT CONSIDERED)
     Route: 042
     Dates: start: 20230807, end: 20230821
  2. PADCEV [Suspect]
     Active Substance: ENFORTUMAB VEDOTIN-EJFV
     Dosage: 1.25 MG/KG, ONCE WEEKLY (C1D8, }125 MG, FOR WEIGHT 111 KG, MAXIMUM DOSE LIMIT NOT CONSIDERED)
     Route: 042
     Dates: start: 20230814
  3. PADCEV [Suspect]
     Active Substance: ENFORTUMAB VEDOTIN-EJFV
     Dosage: 1.25 MG/KG, ONCE WEEKLY (C1D15, }125 MG, FOR WEIGHT 111 KG, MAXIMUM DOSE LIMIT NOT CONSIDERED)
     Route: 042
     Dates: start: 20230821, end: 20230821

REACTIONS (10)
  - Hypothyroidism [Recovering/Resolving]
  - General physical health deterioration [Recovering/Resolving]
  - Diarrhoea [Recovering/Resolving]
  - Weight increased [Recovering/Resolving]
  - Hyponatraemia [Recovering/Resolving]
  - Rash [Recovering/Resolving]
  - Fatigue [Recovering/Resolving]
  - Decreased appetite [Recovering/Resolving]
  - Oliguria [Recovering/Resolving]
  - Overdose [Recovered/Resolved]

NARRATIVE: CASE EVENT DATE: 20230807
